FAERS Safety Report 16088046 (Version 4)
Quarter: 2020Q1

REPORT INFORMATION
  Report Type: Report from Study
  Country: NL (occurrence: NL)
  Receive Date: 20190319
  Receipt Date: 20200116
  Transmission Date: 20200409
  Serious: Yes (Hospitalization)
  Sender: FDA-Public Use
  Company Number: NL-ROCHE-2280171

PATIENT
  Age: 35 Year
  Sex: Female
  Weight: 51 kg

DRUGS (12)
  1. TAMOL [PARACETAMOL] [Concomitant]
     Indication: PREMEDICATION
     Route: 048
     Dates: start: 20190618, end: 20190618
  2. DEXOJECT [Concomitant]
     Indication: PREMEDICATION
     Route: 065
     Dates: start: 20190618, end: 20190618
  3. AVIJECT [Concomitant]
     Indication: PREMEDICATION
     Route: 011
     Dates: start: 20190618, end: 20190618
  4. OCRELIZUMAB. [Suspect]
     Active Substance: OCRELIZUMAB
     Route: 042
     Dates: start: 20191224
  5. OCRELIZUMAB. [Suspect]
     Active Substance: OCRELIZUMAB
     Route: 042
     Dates: start: 20181203
  6. OCRELIZUMAB. [Suspect]
     Active Substance: OCRELIZUMAB
     Route: 042
     Dates: start: 20190618
  7. FAMPYRA [Concomitant]
     Active Substance: DALFAMPRIDINE
     Route: 048
     Dates: start: 2013
  8. FORPACK [Concomitant]
     Route: 048
     Dates: start: 201904
  9. DEKORT [DEXAMETHASONE] [Concomitant]
     Indication: PREMEDICATION
     Dosage: 1 AMULE.?SAME DOSE ON 17/DEC/2018
     Route: 042
     Dates: start: 20181203
  10. OCRELIZUMAB. [Suspect]
     Active Substance: OCRELIZUMAB
     Indication: MULTIPLE SCLEROSIS
     Route: 042
     Dates: start: 20181217
  11. PHENIRAMINE [Concomitant]
     Active Substance: PHENIRAMINE
     Indication: PREMEDICATION
     Dosage: 1 AMULE.?SAME DOSE ON 17/DEC/2018
     Route: 042
     Dates: start: 20181203
  12. TAMOL [PARACETAMOL] [Concomitant]
     Route: 048
     Dates: start: 20181203, end: 20181203

REACTIONS (2)
  - Cellulitis [Recovered/Resolved]
  - Abscess oral [Recovered/Resolved]

NARRATIVE: CASE EVENT DATE: 20190124
